FAERS Safety Report 5161044-8 (Version None)
Quarter: 2006Q4

REPORT INFORMATION
  Report Type: 
  Country: None (occurrence: None)
  Receive Date: 20061121
  Receipt Date: 20061107
  Transmission Date: 20070319
  Serious: Yes (Life-Threatening, Hospitalization)
  Sender: FDA-Public Use
  Company Number: 2006139886

PATIENT
  Age: 55 Year
  Sex: Female
  Weight: 50 kg

DRUGS (6)
  1. SOLU-MEDROL [Suspect]
     Dosage: 80 MG (40 MG, 2 IN 1 D), INTRAVENOUS
     Route: 042
     Dates: start: 20060802
  2. MANNITOL [Suspect]
     Dosage: 500 ML, INTRAVENOUS
     Route: 042
     Dates: start: 20060802
  3. CISPLATIN [Suspect]
     Dosage: 110 MG, INTRAVENOUS
     Route: 042
     Dates: start: 20060802
  4. GEMZAR [Suspect]
     Dosage: 1.8 MG, INTRAVENOUS
     Route: 042
     Dates: start: 20060802
  5. APREPITANT (APREPITANT) [Suspect]
     Dosage: 125 MG, ORAL
     Route: 048
     Dates: start: 20060802
  6. GRANISETRON (GRANISETRON) [Suspect]
     Dosage: 3 MG, INTRAVENOUS
     Route: 042
     Dates: start: 20060802

REACTIONS (8)
  - ACUTE PULMONARY OEDEMA [None]
  - BLOOD PRESSURE SYSTOLIC DECREASED [None]
  - CYANOSIS [None]
  - DYSPNOEA [None]
  - OXYGEN SATURATION DECREASED [None]
  - RALES [None]
  - RESPIRATORY DISTRESS [None]
  - TACHYCARDIA [None]
